FAERS Safety Report 4974953-7 (Version None)
Quarter: 2006Q2

REPORT INFORMATION
  Report Type: 
  Country: None (occurrence: None)
  Receive Date: 20060418
  Receipt Date: 20060213
  Transmission Date: 20061013
  Serious: Yes (Death)
  Sender: FDA-Public Use
  Company Number: GBWYE388213FEB06

PATIENT
  Weight: 82 kg

DRUGS (5)
  1. ENBREL [Suspect]
     Indication: RHEUMATOID ARTHRITIS
     Route: 058
     Dates: start: 20031115, end: 20050515
  2. CALCICHEW [Concomitant]
  3. CO-PROXAMOL [Concomitant]
  4. KETOPROFEN [Concomitant]
  5. MISOPROSTOL [Concomitant]

REACTIONS (6)
  - DIABETES MELLITUS [None]
  - EMPHYSEMA [None]
  - LUNG NEOPLASM MALIGNANT [None]
  - METASTASES TO BONE [None]
  - METASTASES TO BONE MARROW [None]
  - PNEUMONIA [None]
